FAERS Safety Report 8996116 (Version 1)
Quarter: 2013Q1

REPORT INFORMATION
  Report Type: Spontaneous
  Country: US (occurrence: US)
  Receive Date: 20130103
  Receipt Date: 20130103
  Transmission Date: 20140127
  Serious: No
  Sender: FDA-Public Use
  Company Number: US-ABBOTT-12P-163-0933215-00

PATIENT
  Age: 72 Year
  Sex: Female
  Weight: 53.57 kg

DRUGS (3)
  1. SYNTHROID [Suspect]
     Indication: HYPOTHYROIDISM
     Dosage: ALTERNATES DAILY DOSE WITH 50 MCG
     Dates: start: 2012
  2. SYNTHROID [Suspect]
     Indication: HYPOTHYROIDISM
     Dosage: ALTERNATES DAILY DOSE WITH 25 MCG
     Dates: start: 2012
  3. BENICAR [Concomitant]
     Indication: BLOOD PRESSURE

REACTIONS (1)
  - Alopecia [Not Recovered/Not Resolved]
